FAERS Safety Report 6052976-7 (Version None)
Quarter: 2009Q1

REPORT INFORMATION
  Report Type: 
  Country: None (occurrence: None)
  Receive Date: 20090127
  Receipt Date: 20081110
  Transmission Date: 20090719
  Serious: No
  Sender: FDA-Public Use
  Company Number: US-ABBOTT-08P-163-0487044-00

PATIENT
  Sex: Male
  Weight: 76.272 kg

DRUGS (6)
  1. LUPRON DEPOT [Suspect]
     Indication: PROSTATE CANCER
     Route: 030
     Dates: start: 20060101
  2. LUPRON DEPOT [Suspect]
     Indication: METASTASES TO BONE
  3. PREDNISONE [Concomitant]
     Indication: PROSTATE CANCER
     Route: 048
  4. DOCETAXEL [Concomitant]
     Indication: PROSTATE CANCER
     Route: 042
     Dates: end: 20081001
  5. ZOLEDRONIC ACID [Concomitant]
     Indication: PROSTATE CANCER
  6. ZOLEDRONIC ACID [Concomitant]
     Indication: METASTASES TO BONE

REACTIONS (3)
  - ANAEMIA [None]
  - ARTHRALGIA [None]
  - PROSTATIC SPECIFIC ANTIGEN INCREASED [None]
